FAERS Safety Report 6935154-6 (Version None)
Quarter: 2010Q3

REPORT INFORMATION
  Report Type: 
  Country: None (occurrence: None)
  Receive Date: 20100822
  Receipt Date: 20100816
  Transmission Date: 20110219
  Serious: Yes (Death)
  Sender: FDA-Public Use
  Company Number: PHHY2010ES53731

PATIENT
  Age: 77 Year
  Sex: Female

DRUGS (6)
  1. SINTROM [Suspect]
     Indication: ATRIAL FIBRILLATION
     Dosage: UNK G, QD
     Dates: start: 20100319
  2. FEMARA [Suspect]
     Indication: BREAST CANCER
     Dosage: 2.5 G, QD
     Route: 048
  3. DIGOXIN [Concomitant]
     Indication: ATRIAL FIBRILLATION
     Dosage: 250 UG, UNK
     Route: 048
     Dates: start: 20100319, end: 20100508
  4. PANTOPRAZOLE [Concomitant]
     Dosage: 40 MG, UNK
     Route: 048
     Dates: start: 20100319
  5. CARDYL [Concomitant]
     Dosage: 20 MG, QD
     Route: 048
     Dates: start: 20100319
  6. SEGURIL [Concomitant]
     Indication: GASTRIC ULCER
     Dosage: 40 MG, QD
     Route: 048
     Dates: start: 20100319, end: 20100508

REACTIONS (3)
  - CEREBRAL HAEMORRHAGE [None]
  - HAEMATURIA [None]
  - MUSCLE HAEMORRHAGE [None]
